FAERS Safety Report 4343666-7 (Version None)
Quarter: 2004Q2

REPORT INFORMATION
  Report Type: 
  Country: None (occurrence: None)
  Receive Date: 20040421
  Receipt Date: 20040421
  Transmission Date: 20050107
  Serious: Yes (Other)
  Sender: FDA-Public Use
  Company Number: None

PATIENT
  Age: 62 Year
  Sex: Female
  Weight: 96.1626 kg

DRUGS (2)
  1. METOPROLOL [Suspect]
     Indication: CORONARY ARTERY DISEASE
     Dosage: 50 MG BID
     Dates: start: 20040301, end: 20040401
  2. METOPROLOL [Suspect]
     Indication: HYPERTENSION
     Dosage: 50 MG BID
     Dates: start: 20040301, end: 20040401

REACTIONS (3)
  - DIZZINESS [None]
  - MALAISE [None]
  - NAUSEA [None]
